FAERS Safety Report 22018945 (Version 2)
Quarter: 2023Q1

REPORT INFORMATION
  Report Type: Other
  Country: US (occurrence: None)
  Receive Date: 20230222
  Receipt Date: 20230313
  Transmission Date: 20230418
  Serious: Yes (Other)
  Sender: FDA-Public Use
  Company Number: US-ROCHE-3288677

PATIENT
  Age: 50 Year
  Sex: Female

DRUGS (3)
  1. OCREVUS [Suspect]
     Active Substance: OCRELIZUMAB
     Indication: Multiple sclerosis
     Route: 065
  2. GLATIRAMER ACETATE [Concomitant]
     Active Substance: GLATIRAMER ACETATE
  3. FINGOLIMOD [Concomitant]
     Active Substance: FINGOLIMOD

REACTIONS (2)
  - Crohn^s disease [Unknown]
  - Spondylitis [Unknown]
